FAERS Safety Report 9797522 (Version 2)
Quarter: 2014Q1

REPORT INFORMATION
  Report Type: Report from Study
  Country: AU (occurrence: AU)
  Receive Date: 20140106
  Receipt Date: 20140106
  Transmission Date: 20141002
  Serious: Yes (Hospitalization, Other)
  Sender: FDA-Public Use
  Company Number: PHHY2013AU138002

PATIENT
  Age: 28 Year
  Sex: Male

DRUGS (5)
  1. CLOZARIL [Suspect]
     Indication: SCHIZOPHRENIA
     Dosage: 250 MG, (NOCTE)
     Route: 048
  2. CLOZARIL [Suspect]
     Dosage: 600 MG
     Route: 048
     Dates: start: 20131127
  3. CLOZARIL [Suspect]
     Dosage: 150 MG, QD
     Route: 048
     Dates: start: 20131211
  4. TEMAZEPAM [Concomitant]
     Indication: INSOMNIA
     Dosage: 10 MG, ON
     Route: 048
  5. ZUCLOPENTHIXOL [Concomitant]
     Dosage: 50 MG Q2/52
     Route: 030

REACTIONS (5)
  - Overdose [Recovered/Resolved]
  - Gait disturbance [Unknown]
  - Incontinence [Unknown]
  - Dysarthria [Unknown]
  - Antipsychotic drug level increased [Unknown]
